FAERS Safety Report 15833630 (Version 1)
Quarter: 2019Q1

REPORT INFORMATION
  Report Type: Spontaneous
  Country: GB (occurrence: GB)
  Receive Date: 20190116
  Receipt Date: 20190116
  Transmission Date: 20190417
  Serious: Yes (Death, Congenital Anomaly)
  Sender: FDA-Public Use
  Company Number: GB-IMPAX LABORATORIES, LLC-2019-IPXL-00037

PATIENT
  Age: 31 Week

DRUGS (1)
  1. METFORMIN HYDROCHLORIDE ER [Suspect]
     Active Substance: METFORMIN HYDROCHLORIDE
     Indication: PRODUCT USED FOR UNKNOWN INDICATION
     Dosage: UNK
     Route: 064

REACTIONS (4)
  - Stillbirth [Fatal]
  - Hydrops foetalis [Fatal]
  - Heart disease congenital [Fatal]
  - Foetal exposure during pregnancy [Fatal]
